FAERS Safety Report 25080273 (Version 3)
Quarter: 2025Q2

REPORT INFORMATION
  Report Type: Report from Study
  Country: US (occurrence: US)
  Receive Date: 20250314
  Receipt Date: 20250403
  Transmission Date: 20250716
  Serious: Yes (Other)
  Sender: ABBVIE
  Company Number: US-ABBVIE-6155876

PATIENT
  Age: 60 Year
  Sex: Male
  Weight: 83.915 kg

DRUGS (6)
  1. HUMIRA [Suspect]
     Active Substance: ADALIMUMAB
     Indication: Psoriasis
     Route: 058
     Dates: start: 20120915, end: 2024
  2. HUMIRA [Suspect]
     Active Substance: ADALIMUMAB
     Route: 058
     Dates: start: 20120915
  3. HUMIRA [Suspect]
     Active Substance: ADALIMUMAB
     Route: 058
     Dates: start: 20250214
  4. HUMIRA [Suspect]
     Active Substance: ADALIMUMAB
     Route: 058
     Dates: start: 20120915, end: 2024
  5. HUMIRA [Suspect]
     Active Substance: ADALIMUMAB
     Route: 058
     Dates: start: 202501
  6. HUMIRA [Suspect]
     Active Substance: ADALIMUMAB
     Dosage: 13 YEARS AGO
     Route: 058
     Dates: start: 20121016, end: 20121212

REACTIONS (4)
  - Aortic aneurysm [Recovered/Resolved]
  - Aortic aneurysm [Recovered/Resolved]
  - Salmonellosis [Recovered/Resolved]
  - Cognitive disorder [Unknown]

NARRATIVE: CASE EVENT DATE: 20121116
